FAERS Safety Report 7778012-X (Version None)
Quarter: 2011Q3

REPORT INFORMATION
  Report Type: 
  Country: None (occurrence: None)
  Receive Date: 20110926
  Receipt Date: 20110916
  Transmission Date: 20111222
  Serious: No
  Sender: FDA-Public Use
  Company Number: US-BIOGENIDEC-2011BI035735

PATIENT
  Age: 18 Year

DRUGS (2)
  1. AVONEX [Suspect]
     Indication: MULTIPLE SCLEROSIS
     Route: 030
     Dates: start: 20110822
  2. AVONEX [Suspect]
     Route: 030
     Dates: start: 20110901

REACTIONS (2)
  - BACK PAIN [None]
  - INFLUENZA LIKE ILLNESS [None]
